FAERS Safety Report 23226171 (Version 10)
Quarter: 2025Q2

REPORT INFORMATION
  Report Type: Spontaneous
  Country: US (occurrence: US)
  Receive Date: 20231124
  Receipt Date: 20250529
  Transmission Date: 20250716
  Serious: Yes (Hospitalization, Other)
  Sender: CSL BEHRING
  Company Number: US-BEH-2023165660

PATIENT
  Age: 56 Year
  Sex: Female

DRUGS (106)
  1. HIZENTRA [Suspect]
     Active Substance: HUMAN IMMUNOGLOBULIN G
     Indication: Immunodeficiency
     Dosage: 12 GRAM, QW
     Route: 058
     Dates: start: 20220604
  2. HIZENTRA [Suspect]
     Active Substance: HUMAN IMMUNOGLOBULIN G
     Indication: Hypogammaglobulinaemia
     Dosage: 12 GRAM, QW
     Route: 058
     Dates: start: 20210831
  3. HIZENTRA [Suspect]
     Active Substance: HUMAN IMMUNOGLOBULIN G
     Indication: Immunodeficiency common variable
     Dosage: 12 GRAM, QW
     Route: 058
     Dates: start: 20241005
  4. HIZENTRA [Suspect]
     Active Substance: HUMAN IMMUNOGLOBULIN G
     Dosage: 12 G, QW
     Route: 058
     Dates: start: 20241005
  5. HIZENTRA [Suspect]
     Active Substance: HUMAN IMMUNOGLOBULIN G
     Dosage: 12 GRAM, QW
     Route: 058
  6. ACETAZOLAMIDE [Concomitant]
     Active Substance: ACETAZOLAMIDE
  7. ACETAZOLAMIDE [Concomitant]
     Active Substance: ACETAZOLAMIDE
  8. ASPIRIN [Concomitant]
     Active Substance: ASPIRIN
  9. AZITHROMYCIN MONOHYDRATE [Concomitant]
     Active Substance: AZITHROMYCIN MONOHYDRATE
  10. BENZONATATE [Concomitant]
     Active Substance: BENZONATATE
  11. BETAMETASON [BETAMETHASONE SODIUM PHOSPHATE] [Concomitant]
  12. BETAMETHASONE DIPROPIONATE [Concomitant]
     Active Substance: BETAMETHASONE DIPROPIONATE
  13. BUDESONIDE [Concomitant]
     Active Substance: BUDESONIDE
  14. CLARITHROMYCIN [Concomitant]
     Active Substance: CLARITHROMYCIN
  15. CLOTRIMAZOLE [Concomitant]
     Active Substance: CLOTRIMAZOLE
  16. CODEINE [Concomitant]
     Active Substance: CODEINE
  17. CORLANOR [Concomitant]
     Active Substance: IVABRADINE HYDROCHLORIDE
  18. CORLANOR [Concomitant]
     Active Substance: IVABRADINE HYDROCHLORIDE
  19. CRESTOR [Concomitant]
     Active Substance: ROSUVASTATIN CALCIUM
  20. DAPSONE [Concomitant]
     Active Substance: DAPSONE
  21. DEPO-MEDROL [Concomitant]
     Active Substance: METHYLPREDNISOLONE ACETATE
  22. DULERA [Concomitant]
     Active Substance: FORMOTEROL FUMARATE DIHYDRATE\MOMETASONE FUROATE
  23. EMGALITY [Concomitant]
     Active Substance: GALCANEZUMAB-GNLM
  24. EZETIMIBE [Concomitant]
     Active Substance: EZETIMIBE
  25. FASENRA [Concomitant]
     Active Substance: BENRALIZUMAB
  26. FOLIC ACID [Concomitant]
     Active Substance: FOLIC ACID
  27. FUROSEMIDE [Concomitant]
     Active Substance: FUROSEMIDE
  28. HISTEX DM [Concomitant]
     Active Substance: DEXTROMETHORPHAN HYDROBROMIDE\PHENYLEPHRINE HYDROCHLORIDE\TRIPROLIDINE HYDROCHLORIDE
  29. HUMIRA [Concomitant]
     Active Substance: ADALIMUMAB
  30. HYDROCODONE [Concomitant]
     Active Substance: HYDROCODONE
  31. HYDROCHLOROTHIAZIDE [Concomitant]
     Active Substance: HYDROCHLOROTHIAZIDE
  32. HYDROCODONE BITARTRATE AND ACETAMINOPHEN [Concomitant]
     Active Substance: ACETAMINOPHEN\HYDROCODONE BITARTRATE
  33. HYDROXYZINUM ZENTIVA [Concomitant]
  34. IPRATROPIUM [Concomitant]
     Active Substance: IPRATROPIUM
  35. ISOSORBIDE MONONITRATE [Concomitant]
     Active Substance: ISOSORBIDE MONONITRATE
  36. JANUVIA [Concomitant]
     Active Substance: SITAGLIPTIN PHOSPHATE
  37. KENALOG [Concomitant]
     Active Substance: TRIAMCINOLONE ACETONIDE
  38. CLARITHROMYCIN [Concomitant]
     Active Substance: CLARITHROMYCIN
  39. MESTINON [Concomitant]
     Active Substance: PYRIDOSTIGMINE BROMIDE
  40. METHOCARBAMOL [Concomitant]
     Active Substance: METHOCARBAMOL
  41. METHOTREXATE [Concomitant]
     Active Substance: METHOTREXATE
  42. MIRAPEX [Concomitant]
     Active Substance: PRAMIPEXOLE DIHYDROCHLORIDE
  43. MOTEGRITY [Concomitant]
     Active Substance: PRUCALOPRIDE SUCCINATE
  44. NITROGLYCERIN [Concomitant]
     Active Substance: NITROGLYCERIN
  45. NORTRIPTYLINE [Concomitant]
     Active Substance: NORTRIPTYLINE
  46. NYSTATIN [Concomitant]
     Active Substance: NYSTATIN
  47. POTASSIUM CHLORIDE [Concomitant]
     Active Substance: POTASSIUM CHLORIDE
  48. PRAMIPEXOLE [Concomitant]
     Active Substance: PRAMIPEXOLE
  49. PREDNISONE [Concomitant]
     Active Substance: PREDNISONE
  50. PREDNISONE [Concomitant]
     Active Substance: PREDNISONE
  51. OMEPRAZOLE [Concomitant]
     Active Substance: OMEPRAZOLE
  52. QVAR REDIHALER [Concomitant]
     Active Substance: BECLOMETHASONE DIPROPIONATE
  53. ROSUVASTATIN [Concomitant]
     Active Substance: ROSUVASTATIN
  54. SINGULAIR [Concomitant]
     Active Substance: MONTELUKAST SODIUM
  55. SPIRIVA [Concomitant]
     Active Substance: TIOTROPIUM BROMIDE MONOHYDRATE
  56. SPIRONOLACTONE [Concomitant]
     Active Substance: SPIRONOLACTONE
  57. TIZANIDINE [Concomitant]
     Active Substance: TIZANIDINE
  58. UBRELVY [Concomitant]
     Active Substance: UBROGEPANT
  59. VERAPAMIL [Concomitant]
     Active Substance: VERAPAMIL HYDROCHLORIDE
  60. VITAMIN D NOS [Concomitant]
     Active Substance: CHOLECALCIFEROL\ERGOCALCIFEROL
  61. WARFARIN [Concomitant]
     Active Substance: WARFARIN
  62. XELJANZ XR [Concomitant]
     Active Substance: TOFACITINIB CITRATE
  63. XOPENEX [Concomitant]
     Active Substance: LEVALBUTEROL HYDROCHLORIDE
  64. ZETIA [Concomitant]
     Active Substance: EZETIMIBE
  65. ZOFRAN [Concomitant]
     Active Substance: ONDANSETRON HYDROCHLORIDE
  66. ZONEGRAN [Concomitant]
     Active Substance: ZONISAMIDE
  67. ZONISAMIDE [Concomitant]
     Active Substance: ZONISAMIDE
  68. TEZSPIRE [Concomitant]
     Active Substance: TEZEPELUMAB-EKKO
  69. ATROPINE SULFATE [Concomitant]
     Active Substance: ATROPINE SULFATE
  70. BOTOX [Concomitant]
     Active Substance: ONABOTULINUMTOXINA
  71. DEXAMETHASONE PHOSPHATE [Concomitant]
     Active Substance: DEXAMETHASONE PHOSPHATE
  72. DICLOFENAC [Concomitant]
     Active Substance: DICLOFENAC
  73. DOXYCYCLINE HYCLATE [Concomitant]
     Active Substance: DOXYCYCLINE HYCLATE
  74. DULOXETINE [Concomitant]
     Active Substance: DULOXETINE
  75. EPINEPHRINE [Concomitant]
     Active Substance: EPINEPHRINE
  76. ERYTHROMYCIN [Concomitant]
     Active Substance: ERYTHROMYCIN
  77. ESTRADIOL [Concomitant]
     Active Substance: ESTRADIOL
  78. ESTRADIOL [Concomitant]
     Active Substance: ESTRADIOL
  79. FLECAINIDE [Concomitant]
     Active Substance: FLECAINIDE
  80. GABAPENTIN [Concomitant]
     Active Substance: GABAPENTIN
  81. A-HYDROCORT [Concomitant]
     Active Substance: HYDROCORTISONE SODIUM SUCCINATE
  82. A-HYDROCORT [Concomitant]
     Active Substance: HYDROCORTISONE SODIUM SUCCINATE
  83. KETOROLAC [Concomitant]
     Active Substance: KETOROLAC TROMETHAMINE
  84. KLOR-CON M20 [Concomitant]
     Active Substance: POTASSIUM CHLORIDE
  85. LEVALBUTEROL [Concomitant]
     Active Substance: LEVALBUTEROL
  86. LIDOCAINE [Concomitant]
     Active Substance: LIDOCAINE
  87. LOPERAMIDE [Concomitant]
     Active Substance: LOPERAMIDE
  88. METHENAMINE [Concomitant]
     Active Substance: METHENAMINE
  89. METHYLPREDNISOLONE [Concomitant]
     Active Substance: METHYLPREDNISOLONE
  90. MOMETASONE [Concomitant]
     Active Substance: MOMETASONE
  91. MONTELUKAST [Concomitant]
     Active Substance: MONTELUKAST
  92. NALOXONE HCL [Concomitant]
     Active Substance: NALOXONE HYDROCHLORIDE
  93. ONDANSETRON [Concomitant]
     Active Substance: ONDANSETRON
  94. ONDANSETRON [Concomitant]
     Active Substance: ONDANSETRON
  95. OXYBUTYNIN [Concomitant]
     Active Substance: OXYBUTYNIN
  96. OXYBUTYNIN [Concomitant]
     Active Substance: OXYBUTYNIN
  97. OXYCODONE [Concomitant]
     Active Substance: OXYCODONE
  98. OZEMPIC [Concomitant]
     Active Substance: SEMAGLUTIDE
  99. PANTOPRAZOLE [Concomitant]
     Active Substance: PANTOPRAZOLE
  100. POTASSIUM CHLORIDE [Concomitant]
     Active Substance: POTASSIUM CHLORIDE
  101. PREDNISOLONE [Concomitant]
     Active Substance: PREDNISOLONE
  102. PROMETHAZINE [Concomitant]
     Active Substance: PROMETHAZINE HYDROCHLORIDE
  103. TAMSULOSIN [Concomitant]
     Active Substance: TAMSULOSIN
  104. TOPIRAMATE [Concomitant]
     Active Substance: TOPIRAMATE
  105. TOPIRAMATE [Concomitant]
     Active Substance: TOPIRAMATE
  106. TREMFYA [Concomitant]
     Active Substance: GUSELKUMAB

REACTIONS (28)
  - Urinary tract infection [Unknown]
  - Drug ineffective [Not Recovered/Not Resolved]
  - Infection [Not Recovered/Not Resolved]
  - Spinal fracture [Not Recovered/Not Resolved]
  - Pain [Not Recovered/Not Resolved]
  - Fatigue [Not Recovered/Not Resolved]
  - Alopecia [Not Recovered/Not Resolved]
  - Infection [Unknown]
  - Pyrexia [Unknown]
  - Hyperhidrosis [Unknown]
  - Pain [Unknown]
  - Loss of personal independence in daily activities [Not Recovered/Not Resolved]
  - Pain [Not Recovered/Not Resolved]
  - Fatigue [Not Recovered/Not Resolved]
  - Alopecia [Not Recovered/Not Resolved]
  - Infection [Unknown]
  - Pain [Unknown]
  - Ill-defined disorder [Unknown]
  - Loss of personal independence in daily activities [Not Recovered/Not Resolved]
  - Pain [Unknown]
  - Infection [Unknown]
  - Arthralgia [Not Recovered/Not Resolved]
  - Asthma [Not Recovered/Not Resolved]
  - Pain [Not Recovered/Not Resolved]
  - Pain [Not Recovered/Not Resolved]
  - Infection [Not Recovered/Not Resolved]
  - Diarrhoea [Not Recovered/Not Resolved]
  - Loss of personal independence in daily activities [Not Recovered/Not Resolved]

NARRATIVE: CASE EVENT DATE: 20231001
